FAERS Safety Report 9233164 (Version 1)
Quarter: 2013Q2

REPORT INFORMATION
  Report Type: Spontaneous
  Country: US (occurrence: None)
  Receive Date: 20130415
  Receipt Date: 20130415
  Transmission Date: 20140414
  Serious: No
  Sender: FDA-Public Use
  Company Number: None

PATIENT
  Age: 56 Year
  Sex: Female

DRUGS (1)
  1. RIBAVIRIN [Suspect]
     Indication: RESPIRATORY SYNCYTIAL VIRUS INFECTION
     Dosage: 6 G INHALED OVER 12 H
     Route: 055
     Dates: start: 20121226

REACTIONS (8)
  - Pruritus [None]
  - Throat irritation [None]
  - Eye pruritus [None]
  - Burning sensation [None]
  - Dysgeusia [None]
  - Chest discomfort [None]
  - Pulse abnormal [None]
  - Accidental exposure to product [None]
